FAERS Safety Report 22651280 (Version 1)
Quarter: 2023Q2

REPORT INFORMATION
  Report Type: Spontaneous
  Country: DK (occurrence: DK)
  Receive Date: 20230628
  Receipt Date: 20230628
  Transmission Date: 20230721
  Serious: Yes (Hospitalization, Other)
  Sender: FDA-Public Use
  Company Number: DK-009507513-2304DNK001084

PATIENT
  Age: 60 Year
  Sex: Female
  Weight: 69.5 kg

DRUGS (18)
  1. ABRAXANE [Suspect]
     Active Substance: PACLITAXEL
     Indication: Ductal adenocarcinoma of pancreas
     Dosage: 125 MILLIGRAM/SQ. METER TWICE EVERY Q3W
     Route: 042
     Dates: start: 20230320, end: 20230320
  2. ABRAXANE [Suspect]
     Active Substance: PACLITAXEL
     Dosage: REDUCED DOSE: 100 MILLIGRAM/SQ. METER, TWICE EVERY 3 WEEKS (2Q3W)
     Route: 042
     Dates: start: 20230412
  3. GEMCITABINE [Suspect]
     Active Substance: GEMCITABINE
     Indication: Product used for unknown indication
     Dosage: 1000 MILLIGRAM/SQ. METER TWICE EVERY 3 WEES
     Route: 042
     Dates: start: 20230320, end: 20230320
  4. GEMCITABINE [Suspect]
     Active Substance: GEMCITABINE
     Dosage: REDUCED DOSE: 800 MILLIGRAM/SQ. METER, TWICE EVERY 3 WEEKS (2Q3W)
     Route: 042
     Dates: start: 20230412
  5. PEMBROLIZUMAB [Suspect]
     Active Substance: PEMBROLIZUMAB
     Indication: Ductal adenocarcinoma of pancreas
     Dosage: 200 MILLIGRAM, Q3W
     Route: 042
     Dates: start: 20230320
  6. CETIRIZINE HYDROCHLORIDE [Concomitant]
     Active Substance: CETIRIZINE HYDROCHLORIDE
     Indication: Product used for unknown indication
     Dates: start: 20230320
  7. OXYCODONE [Concomitant]
     Active Substance: OXYCODONE
     Indication: Product used for unknown indication
  8. OXYCONTIN [Concomitant]
     Active Substance: OXYCODONE HYDROCHLORIDE
     Indication: Product used for unknown indication
     Dates: start: 20230317
  9. OXYCONTIN [Concomitant]
     Active Substance: OXYCODONE HYDROCHLORIDE
     Dosage: UNK
     Dates: start: 20230306
  10. TINZAPARIN [Concomitant]
     Active Substance: TINZAPARIN
     Indication: Product used for unknown indication
     Dates: start: 20230224
  11. LACTULOSE [Concomitant]
     Active Substance: LACTULOSE
     Indication: Product used for unknown indication
     Dates: start: 20230306, end: 20230327
  12. POLYETHYLENE GLYCOLS [Concomitant]
     Active Substance: POLYETHYLENE GLYCOLS
     Indication: Product used for unknown indication
     Dates: start: 20230317, end: 20230327
  13. ACETAMINOPHEN [Concomitant]
     Active Substance: ACETAMINOPHEN
     Indication: Product used for unknown indication
     Dates: start: 20230224
  14. MAGNESIA [MAGNESIUM OXIDE] [Concomitant]
     Indication: Product used for unknown indication
     Dates: start: 20230306, end: 20230317
  15. DOMPERIDONE [Concomitant]
     Active Substance: DOMPERIDONE
     Indication: Product used for unknown indication
     Dates: start: 20230317
  16. CLEMASTINE FUMARATE [Concomitant]
     Active Substance: CLEMASTINE FUMARATE
     Indication: Product used for unknown indication
     Dates: start: 20230320, end: 20230320
  17. PANTOPRAZOLE [Concomitant]
     Active Substance: PANTOPRAZOLE
     Indication: Product used for unknown indication
     Dates: start: 20230307
  18. LOPERAMIDE [Concomitant]
     Active Substance: LOPERAMIDE
     Indication: Product used for unknown indication
     Dates: start: 20230320

REACTIONS (7)
  - Neutropenia [Recovered/Resolved]
  - Rash [Unknown]
  - Pyrexia [Recovered/Resolved]
  - Pneumonia [Recovered/Resolved]
  - Leukopenia [Recovered/Resolved]
  - Thrombocytopenia [Unknown]
  - Lymphopenia [Unknown]

NARRATIVE: CASE EVENT DATE: 20230320
